FAERS Safety Report 19513936 (Version 2)
Quarter: 2023Q4

REPORT INFORMATION
  Report Type: Spontaneous
  Country: US (occurrence: US)
  Receive Date: 20210709
  Receipt Date: 20231027
  Transmission Date: 20240109
  Serious: No
  Sender: FDA-Public Use
  Company Number: US-AVEO ONCOLOGY-2021-AVEO-US003319

PATIENT

DRUGS (20)
  1. FOTIVDA [Suspect]
     Active Substance: TIVOZANIB HYDROCHLORIDE
     Indication: Renal cell carcinoma
     Dosage: 1.34 MG, TAKE IT ROUTINELY FOR 21 DAYS AND STOP FOR 7 DAYS
     Route: 048
  2. DIAZEPAM [Concomitant]
     Active Substance: DIAZEPAM
     Dosage: 10 MG
     Route: 065
  3. EPIPEN [Concomitant]
     Active Substance: EPINEPHRINE
  4. ERGOCALCIFEROL [Concomitant]
     Active Substance: ERGOCALCIFEROL
     Dosage: 1.25 MG
     Route: 065
  5. ULORIC [Concomitant]
     Active Substance: FEBUXOSTAT
     Dosage: 80 MG
     Route: 065
  6. NORCO [Concomitant]
     Active Substance: ACETAMINOPHEN\HYDROCODONE BITARTRATE
  7. LEVETIRACETAM CT [Concomitant]
     Dosage: 1000 MG
     Route: 065
  8. SYNTHROID [Concomitant]
     Active Substance: LEVOTHYROXINE SODIUM
     Dosage: 50 MCG
     Route: 065
  9. LOPERAMIDE HYDROCHLORIDE [Concomitant]
     Active Substance: LOPERAMIDE HYDROCHLORIDE
     Dosage: 2 MG
     Route: 065
  10. METFORMIN HYDROCHLORIDE [Concomitant]
     Active Substance: METFORMIN HYDROCHLORIDE
     Dosage: 500 MG
     Route: 065
  11. NORTRIPTYLINE [Concomitant]
     Active Substance: NORTRIPTYLINE
     Dosage: 50 MG
     Route: 048
  12. .BETA.-HYDROXYISOVALERIC ACID\ARGININE\GLUTAMINE [Concomitant]
     Active Substance: .BETA.-HYDROXYISOVALERIC ACID\ARGININE\GLUTAMINE
  13. OMEPRAZOLE [Concomitant]
     Active Substance: OMEPRAZOLE
     Dosage: 20 MG
     Route: 065
  14. ONDANSETRON [Concomitant]
     Active Substance: ONDANSETRON
     Dosage: 4 MG
     Route: 065
  15. KLOR-CON [Concomitant]
     Active Substance: POTASSIUM CHLORIDE
     Dosage: 10 MEQ
     Route: 065
  16. MG PLUS PROTEIN [Concomitant]
     Dosage: 133 MG
     Route: 048
  17. UREA [Concomitant]
     Active Substance: UREA
     Dosage: 20 UNK
     Route: 065
  18. ELIQUIS [Concomitant]
     Active Substance: APIXABAN
  19. CLOBETASOL [Concomitant]
     Active Substance: CLOBETASOL
  20. CYANOCOBALAMIN [Concomitant]
     Active Substance: CYANOCOBALAMIN

REACTIONS (1)
  - Myalgia [Recovered/Resolved]
